FAERS Safety Report 5717677-0 (Version None)
Quarter: 2008Q2

REPORT INFORMATION
  Report Type: 
  Country: None (occurrence: None)
  Receive Date: 20080425
  Receipt Date: 20080416
  Transmission Date: 20081010
  Serious: Yes (Life-Threatening, Hospitalization)
  Sender: FDA-Public Use
  Company Number: FR-JNJFOC-20080401706

PATIENT
  Age: 32 Year
  Sex: Male
  Weight: 62 kg

DRUGS (9)
  1. REMICADE [Suspect]
     Route: 042
  2. REMICADE [Suspect]
     Route: 042
  3. REMICADE [Suspect]
     Route: 042
  4. REMICADE [Suspect]
     Indication: CROHN'S DISEASE
     Route: 042
  5. IMUREL [Suspect]
     Indication: CROHN'S DISEASE
     Route: 048
  6. HYDROCORTISONE [Concomitant]
  7. HYDROCORTISONE [Concomitant]
     Indication: CROHN'S DISEASE
  8. PREDNISONE [Concomitant]
     Indication: CROHN'S DISEASE
     Route: 048
  9. ROWASA [Concomitant]
     Indication: CROHN'S DISEASE
     Route: 048

REACTIONS (4)
  - BASAL CELL CARCINOMA [None]
  - PAPILLOMA [None]
  - PRURITUS [None]
  - SKIN PAPILLOMA [None]
